FAERS Safety Report 22247431 (Version 1)
Quarter: 2023Q2

REPORT INFORMATION
  Report Type: Report from Study
  Country: US (occurrence: US)
  Receive Date: 20230425
  Receipt Date: 20230425
  Transmission Date: 20230721
  Serious: Yes (Other)
  Sender: FDA-Public Use
  Company Number: US-ABBVIE-4739138

PATIENT
  Sex: Female

DRUGS (1)
  1. IMBRUVICA [Suspect]
     Active Substance: IBRUTINIB
     Indication: Chronic lymphocytic leukaemia
     Route: 048
     Dates: start: 20210501

REACTIONS (6)
  - Gastritis [Unknown]
  - Weight increased [Unknown]
  - Peripheral swelling [Unknown]
  - Vascular pseudoaneurysm [Unknown]
  - Abdominal pain upper [Unknown]
  - Eating disorder [Unknown]

NARRATIVE: CASE EVENT DATE: 20230101
